FAERS Safety Report 23602347 (Version 2)
Quarter: 2024Q2

REPORT INFORMATION
  Report Type: Spontaneous
  Country: JP (occurrence: JP)
  Receive Date: 20240306
  Receipt Date: 20240507
  Transmission Date: 20240715
  Serious: No
  Sender: FDA-Public Use
  Company Number: JP-WW-2023-13746

PATIENT
  Age: 87 Year
  Sex: Male

DRUGS (4)
  1. LUNESTA [Suspect]
     Active Substance: ESZOPICLONE
     Indication: Insomnia
     Route: 048
  2. DAYVIGO [Suspect]
     Active Substance: LEMBOREXANT
     Dosage: 5 MG
     Route: 065
  3. BELSOMRA [Concomitant]
     Active Substance: SUVOREXANT
     Route: 048
  4. RAMELTEON [Concomitant]
     Active Substance: RAMELTEON
     Route: 065

REACTIONS (2)
  - Anxiety [Recovering/Resolving]
  - Agitation [Recovering/Resolving]
